FAERS Safety Report 5391843-9 (Version None)
Quarter: 2007Q3

REPORT INFORMATION
  Report Type: 
  Country: None (occurrence: None)
  Receive Date: 20070718
  Receipt Date: 20070706
  Transmission Date: 20080115
  Serious: Yes (Other)
  Sender: FDA-Public Use
  Company Number: 2007SP013688

PATIENT
  Age: 54 Year
  Sex: Male
  Weight: 107.0489 kg

DRUGS (2)
  1. PEG-INTRON [Suspect]
     Indication: HEPATITIS C
     Dosage: 150 MCG;QW;SC
     Route: 058
     Dates: start: 20070316, end: 20070608
  2. RIBAVIRIN [Suspect]
     Indication: HEPATITIS C
     Dosage: 1200 MG;PO
     Route: 048
     Dates: start: 20070316, end: 20070608

REACTIONS (5)
  - AMMONIA INCREASED [None]
  - ASCITES [None]
  - ENCEPHALOPATHY [None]
  - OEDEMA PERIPHERAL [None]
  - THROMBOCYTOPENIA [None]
